FAERS Safety Report 20642690 (Version 3)
Quarter: 2022Q2

REPORT INFORMATION
  Report Type: Report from Study
  Country: CZ (occurrence: CZ)
  Receive Date: 20220328
  Receipt Date: 20220516
  Transmission Date: 20220721
  Serious: Yes (Other)
  Sender: FDA-Public Use
  Company Number: CZ-NOVARTISPH-NVSC2021CZ203758

PATIENT
  Sex: Female

DRUGS (2)
  1. DABRAFENIB [Suspect]
     Active Substance: DABRAFENIB
     Indication: Optic glioma
     Dosage: UNK
     Route: 065
     Dates: start: 20201007
  2. TRAMETINIB [Suspect]
     Active Substance: TRAMETINIB
     Indication: Optic glioma
     Dosage: UNK
     Route: 065
     Dates: start: 20201007

REACTIONS (9)
  - Dermatitis exfoliative generalised [Recovered/Resolved]
  - Dermatitis [Recovering/Resolving]
  - Aphthous ulcer [Recovered/Resolved]
  - Tinea capitis [Unknown]
  - Hair colour changes [Unknown]
  - Folliculitis [Recovered/Resolved]
  - Eczema [Unknown]
  - Transaminases increased [Unknown]
  - COVID-19 [Recovered/Resolved]

NARRATIVE: CASE EVENT DATE: 20210105
